FAERS Safety Report 4945382-7 (Version None)
Quarter: 2006Q1

REPORT INFORMATION
  Report Type: 
  Country: None (occurrence: None)
  Receive Date: 20060315
  Receipt Date: 20060315
  Transmission Date: 20060701
  Serious: No
  Sender: FDA-Public Use
  Company Number: None

PATIENT
  Age: 53 Year
  Sex: Male
  Weight: 91 kg

DRUGS (12)
  1. UNASYN [Suspect]
     Indication: BACTERIAL INFECTION
     Dosage: 3 GM Q6H IV
     Route: 042
     Dates: start: 20051021, end: 20051023
  2. ASPIRIN [Concomitant]
  3. CARVEDILOL [Concomitant]
  4. ETHAMBUTOL [Concomitant]
  5. FOSINOPRIL SODIUM [Concomitant]
  6. INH [Concomitant]
  7. MORPHINE [Concomitant]
  8. NAPROXEN [Concomitant]
  9. OMEPRAZOLE [Concomitant]
  10. PYRAZINAMIDE [Concomitant]
  11. PYRIDOXINE HCL [Concomitant]
  12. RIFAMPIN [Concomitant]

REACTIONS (1)
  - PRURITUS [None]
